FAERS Safety Report 16486520 (Version 1)
Quarter: 2019Q2

REPORT INFORMATION
  Report Type: Spontaneous
  Country: US (occurrence: US)
  Receive Date: 20190517
  Receipt Date: 20190517
  Transmission Date: 20190711
  Serious: No
  Sender: FDA-Public Use
  Company Number: None

PATIENT
  Age: 15 Year
  Sex: Male

DRUGS (1)
  1. ILARIS [Suspect]
     Active Substance: CANAKINUMAB
     Indication: JUVENILE IDIOPATHIC ARTHRITIS
     Route: 058
     Dates: start: 20170418

REACTIONS (4)
  - Hepatic enzyme increased [None]
  - Fatigue [None]
  - Arthritis [None]
  - Therapeutic product effect decreased [None]

NARRATIVE: CASE EVENT DATE: 20190301
